FAERS Safety Report 26130326 (Version 1)
Quarter: 2025Q4

REPORT INFORMATION
  Report Type: Spontaneous
  Country: RU (occurrence: RU)
  Receive Date: 20251208
  Receipt Date: 20251208
  Transmission Date: 20260118
  Serious: Yes (Hospitalization)
  Sender: CHEPLAPHARM
  Company Number: RU-CHEPLA-2025013714

PATIENT
  Age: 63 Year
  Sex: Female

DRUGS (2)
  1. QUETIAPINE [Suspect]
     Active Substance: QUETIAPINE
     Indication: Mental disorder
     Dosage: AT NIGHT?DAILY DOSE: 100 MILLIGRAM
  2. SERTRALINE [Suspect]
     Active Substance: SERTRALINE HYDROCHLORIDE
     Indication: Mental disorder
     Dosage: IN THE MORNING?DAILY DOSE: 100 MILLIGRAM

REACTIONS (5)
  - Atrial fibrillation [Recovering/Resolving]
  - Coronary artery insufficiency [Recovering/Resolving]
  - Electrolyte imbalance [Unknown]
  - Low density lipoprotein increased [Unknown]
  - Atrial flutter [Recovering/Resolving]

NARRATIVE: CASE EVENT DATE: 20240815
